FAERS Safety Report 16831212 (Version 1)
Quarter: 2019Q3

REPORT INFORMATION
  Report Type: Spontaneous
  Country: CA (occurrence: CA)
  Receive Date: 20190920
  Receipt Date: 20190920
  Transmission Date: 20191005
  Serious: Yes (Hospitalization, Other)
  Sender: FDA-Public Use
  Company Number: CA-TEVA-2019-CA-1111508

PATIENT
  Age: 37 Year
  Sex: Male

DRUGS (4)
  1. SILDENAFIL CITRATE. [Suspect]
     Active Substance: SILDENAFIL CITRATE
     Indication: PRODUCT USED FOR UNKNOWN INDICATION
     Route: 065
  2. SILDENAFIL CITRATE. [Suspect]
     Active Substance: SILDENAFIL CITRATE
     Indication: SUBSTANCE USE
     Route: 048
  3. TADALAFIL. [Suspect]
     Active Substance: TADALAFIL
     Indication: PRODUCT USED FOR UNKNOWN INDICATION
  4. TADALAFIL. [Suspect]
     Active Substance: TADALAFIL
     Indication: SUBSTANCE USE
     Route: 048

REACTIONS (3)
  - Fixed eruption [Recovered/Resolved]
  - Intentional product misuse [Recovered/Resolved]
  - Eosinophil count increased [Recovered/Resolved]
